FAERS Safety Report 26157863 (Version 1)
Quarter: 2025Q4

REPORT INFORMATION
  Report Type: Spontaneous
  Country: US (occurrence: None)
  Receive Date: 20251213
  Receipt Date: 20251213
  Transmission Date: 20260117
  Serious: Yes (unspecified)
  Sender: FDA-CTU
  Company Number: None

PATIENT
  Age: 76 Year
  Sex: Female
  Weight: 81 kg

DRUGS (1)
  1. ZYVOX [Suspect]
     Active Substance: LINEZOLID
     Indication: Wound infection staphylococcal
     Dates: start: 20251101, end: 20251102

REACTIONS (6)
  - Vomiting [None]
  - Nausea [None]
  - Gastrointestinal disorder [None]
  - Skin disorder [None]
  - Proctalgia [None]
  - Product prescribing error [None]

NARRATIVE: CASE EVENT DATE: 20251101
